FAERS Safety Report 14502948 (Version 1)
Quarter: 2018Q1

REPORT INFORMATION
  Report Type: Spontaneous
  Country: US (occurrence: US)
  Receive Date: 20180207
  Receipt Date: 20180207
  Transmission Date: 20180509
  Serious: No
  Sender: FDA-Public Use
  Company Number: None

PATIENT
  Age: 61 Year
  Sex: Female

DRUGS (1)
  1. IBRANCE [Suspect]
     Active Substance: PALBOCICLIB
     Indication: BREAST CANCER
     Dosage: DAIILY FOR 21DAYS OF 28 DAY CYCLE                                   ?
     Route: 048
     Dates: start: 20170216

REACTIONS (1)
  - Dizziness [None]

NARRATIVE: CASE EVENT DATE: 20180126
